FAERS Safety Report 9626454 (Version 2)
Quarter: 2013Q4

REPORT INFORMATION
  Report Type: Report from Study
  Country: JP (occurrence: JP)
  Receive Date: 20131016
  Receipt Date: 20131016
  Transmission Date: 20140711
  Serious: Yes (Hospitalization)
  Sender: FDA-Public Use
  Company Number: JP-TAKEDA-TCI2012A03414

PATIENT
  Age: 78 Year
  Sex: Male
  Weight: 60 kg

DRUGS (11)
  1. LANSOPRAZOLE [Suspect]
     Indication: PROPHYLAXIS AGAINST GASTROINTESTINAL ULCER
     Dosage: 15 MG, QD
     Route: 048
     Dates: start: 20120507
  2. LOXONIN [Concomitant]
     Indication: BACK PAIN
     Route: 048
     Dates: start: 20110618
  3. LOXONIN [Concomitant]
     Indication: PERIARTHRITIS
  4. LOXONIN [Concomitant]
     Indication: BACK PAIN
  5. MOHRUS TAPE [Concomitant]
     Indication: PERIARTHRITIS
     Route: 062
     Dates: start: 20120416
  6. MOHRUS TAPE [Concomitant]
     Indication: PERIARTHRITIS
  7. SERMION [Concomitant]
     Indication: CEREBROVASCULAR DISORDER
     Route: 048
     Dates: start: 20110106
  8. SERMION [Concomitant]
     Indication: CEREBROVASCULAR DISORDER
  9. MYSLEE [Concomitant]
     Indication: INSOMNIA
     Route: 048
     Dates: start: 20111027
  10. BENOZIL [Concomitant]
     Indication: INSOMNIA
     Route: 048
     Dates: start: 20120423
  11. LENDORMIN [Concomitant]
     Indication: INSOMNIA
     Route: 048
     Dates: start: 20120327

REACTIONS (3)
  - Back pain [Unknown]
  - Condition aggravated [Unknown]
  - Condition aggravated [Unknown]
